FAERS Safety Report 4591471-9 (Version None)
Quarter: 2005Q1

REPORT INFORMATION
  Report Type: 
  Country: None (occurrence: None)
  Receive Date: 20050225
  Receipt Date: 20050218
  Transmission Date: 20050727
  Serious: Yes (Other)
  Sender: FDA-Public Use
  Company Number: CH-ABBOTT-05P-151-0291314-00

PATIENT
  Age: 59 Year
  Sex: Male
  Weight: 84 kg

DRUGS (1)
  1. KLACID [Suspect]
     Indication: INFECTION
     Route: 048

REACTIONS (6)
  - ASCITES [None]
  - HEPATIC FUNCTION ABNORMAL [None]
  - HEPATITIS CHOLESTATIC [None]
  - HEPATOCELLULAR DAMAGE [None]
  - JAUNDICE [None]
  - PROTHROMBIN TIME PROLONGED [None]
